FAERS Safety Report 7668091-2 (Version None)
Quarter: 2011Q3

REPORT INFORMATION
  Report Type: 
  Country: None (occurrence: None)
  Receive Date: 20110808
  Receipt Date: 20110727
  Transmission Date: 20111222
  Serious: Yes (Other)
  Sender: FDA-Public Use
  Company Number: CA-JNJFOC-20110801548

PATIENT
  Sex: Male
  Weight: 98 kg

DRUGS (2)
  1. REMICADE [Suspect]
     Indication: COLITIS ULCERATIVE
     Route: 042
     Dates: start: 20061101
  2. MESALAMINE [Concomitant]
     Route: 065

REACTIONS (4)
  - INFUSION RELATED REACTION [None]
  - NEPHROLITHIASIS [None]
  - HAEMATURIA [None]
  - URINARY TRACT INFECTION [None]
